FAERS Safety Report 13852237 (Version 1)
Quarter: 2017Q3

REPORT INFORMATION
  Report Type: Spontaneous
  Country: US (occurrence: US)
  Receive Date: 20170810
  Receipt Date: 20170810
  Transmission Date: 20171127
  Serious: No
  Sender: FDA-Public Use
  Company Number: US-PFIZER INC-2017346592

PATIENT
  Age: 70 Year
  Sex: Female

DRUGS (3)
  1. LISINOPRIL. [Concomitant]
     Active Substance: LISINOPRIL
     Indication: HYPERTENSION
     Dosage: 10 MG, 1X/DAY
  2. CELEBREX [Suspect]
     Active Substance: CELECOXIB
     Indication: ARTHRITIS
     Dosage: 400 MG, 1X/DAY, ^ONE A DAY EVERY MORNING WHEN I EAT MY BREAKFAST^
     Route: 048
     Dates: start: 20151231
  3. LYRICA [Suspect]
     Active Substance: PREGABALIN
     Indication: NEUROPATHY PERIPHERAL
     Dosage: 75 MG, 2X/DAY, ^ONE IN THE MORNING AND ONE AT NIGHT^
     Route: 048
     Dates: start: 20151231

REACTIONS (1)
  - Memory impairment [Unknown]
